FAERS Safety Report 7390692-X (Version None)
Quarter: 2011Q2

REPORT INFORMATION
  Report Type: 
  Country: None (occurrence: None)
  Receive Date: 20110404
  Receipt Date: 20110324
  Transmission Date: 20111010
  Serious: No
  Sender: FDA-Public Use
  Company Number: US-BIOGENIDEC-2011BI008783

PATIENT
  Sex: Female

DRUGS (1)
  1. TYSABRI [Suspect]
     Indication: MULTIPLE SCLEROSIS
     Route: 042
     Dates: start: 20100112

REACTIONS (5)
  - FACIAL NEURALGIA [None]
  - MUSCULOSKELETAL DISORDER [None]
  - SOMNOLENCE [None]
  - FATIGUE [None]
  - TRIGEMINAL NEURALGIA [None]
